FAERS Safety Report 24226543 (Version 1)
Quarter: 2024Q3

REPORT INFORMATION
  Report Type: Spontaneous
  Country: CN (occurrence: CN)
  Receive Date: 20240820
  Receipt Date: 20240820
  Transmission Date: 20241017
  Serious: Yes (Other)
  Sender: ROCHE
  Company Number: CN-ROCHE-10000059041

PATIENT
  Age: 43 Year
  Sex: Male
  Weight: 93 kg

DRUGS (3)
  1. RITUXIMAB [Suspect]
     Active Substance: RITUXIMAB
     Indication: Glomerulonephritis membranous
     Dosage: THE PATIENT EXPERIENCED OFF LABEL USE (DRUG INTENTIONAL USED FOR UNLABELED INDICATION).
     Route: 042
     Dates: start: 20240812, end: 20240812
  2. RITUXIMAB [Suspect]
     Active Substance: RITUXIMAB
     Indication: Hyperlipidaemia
  3. SODIUM CHLORIDE [Concomitant]
     Active Substance: SODIUM CHLORIDE
     Route: 042
     Dates: start: 20240812, end: 20240812

REACTIONS (2)
  - Hiccups [Recovering/Resolving]
  - Off label use [Unknown]

NARRATIVE: CASE EVENT DATE: 20240812
